FAERS Safety Report 8390194-8 (Version None)
Quarter: 2012Q2

REPORT INFORMATION
  Report Type: 
  Country: None (occurrence: None)
  Receive Date: 20120529
  Receipt Date: 20120518
  Transmission Date: 20120825
  Serious: Yes (Other)
  Sender: FDA-Public Use
  Company Number: JP-PFIZER INC-2012127006

PATIENT
  Age: 65 Year
  Sex: Male

DRUGS (2)
  1. TIZANIDINE HYDROCHLORIDE [Concomitant]
     Dosage: UNK
  2. CELEBREX [Suspect]
     Dosage: UNK
     Route: 048

REACTIONS (2)
  - LOSS OF CONSCIOUSNESS [None]
  - DIZZINESS [None]
